FAERS Safety Report 17927909 (Version 2)
Quarter: 2020Q2

REPORT INFORMATION
  Report Type: Report from Study
  Country: BR (occurrence: BR)
  Receive Date: 20200622
  Receipt Date: 20200629
  Transmission Date: 20200714
  Serious: Yes (Hospitalization, Other)
  Sender: FDA-Public Use
  Company Number: NVSC2019BR069358

PATIENT
  Age: 52 Year
  Sex: Female
  Weight: 61 kg

DRUGS (5)
  1. FEMARA [Suspect]
     Active Substance: LETROZOLE
     Indication: BREAST CANCER
     Dosage: 2.5 MG (1 TABLET A DAY)
     Route: 065
     Dates: start: 20191206
  2. ZOLADEX [Concomitant]
     Active Substance: GOSERELIN ACETATE
     Indication: PRODUCT USED FOR UNKNOWN INDICATION
     Dosage: UNK
     Route: 065
  3. KISQALI [Suspect]
     Active Substance: RIBOCICLIB
     Indication: BREAST CANCER
     Dosage: UNK
     Route: 065
     Dates: start: 20191204
  4. KISQALI [Suspect]
     Active Substance: RIBOCICLIB
     Dosage: 200 MG (3 TABLETS FOR 21 DAYS)
     Route: 065
     Dates: start: 20191206
  5. XGEVA [Concomitant]
     Active Substance: DENOSUMAB
     Indication: PRODUCT USED FOR UNKNOWN INDICATION
     Dosage: UNK
     Route: 065

REACTIONS (11)
  - Bone pain [Recovering/Resolving]
  - Pain [Not Recovered/Not Resolved]
  - Sternal fracture [Unknown]
  - Bone cancer [Unknown]
  - Spinal fracture [Unknown]
  - Neoplasm [Unknown]
  - Back pain [Recovered/Resolved]
  - Spinal cord injury [Not Recovered/Not Resolved]
  - Fracture [Not Recovered/Not Resolved]
  - Metastasis [Unknown]
  - Spinal pain [Unknown]

NARRATIVE: CASE EVENT DATE: 201910
